FAERS Safety Report 13983345 (Version 1)
Quarter: 2017Q3

REPORT INFORMATION
  Report Type: Spontaneous
  Country: CA (occurrence: CA)
  Receive Date: 20170918
  Receipt Date: 20170918
  Transmission Date: 20171128
  Serious: No
  Sender: FDA-Public Use
  Company Number: CA-B. BRAUN MEDICAL INC.-2026654

PATIENT
  Age: 66 Year
  Sex: Male

DRUGS (1)
  1. HEPARIN SODIUM AND DEXTROSE [Suspect]
     Active Substance: HEPARIN SODIUM

REACTIONS (1)
  - Drug ineffective [None]
